FAERS Safety Report 25920972 (Version 2)
Quarter: 2025Q4

REPORT INFORMATION
  Report Type: Spontaneous
  Country: AZ (occurrence: AZ)
  Receive Date: 20251014
  Receipt Date: 20251024
  Transmission Date: 20260117
  Serious: Yes (Other)
  Sender: NOVARTIS
  Company Number: AZ-002147023-NVSC2025AZ126207

PATIENT
  Age: 68 Year
  Sex: Female

DRUGS (4)
  1. PIQRAY [Suspect]
     Active Substance: ALPELISIB
     Indication: Hormone receptor positive HER2 negative breast cancer
     Dosage: 150 MG, BID
     Route: 048
     Dates: start: 202505
  2. PIQRAY [Suspect]
     Active Substance: ALPELISIB
     Indication: Hepatic cancer
     Dosage: 150 MG, QD
     Route: 065
  3. FULVESTRANT [Concomitant]
     Active Substance: FULVESTRANT
     Indication: Hormone receptor positive HER2 negative breast cancer
     Dosage: UNK (250 MG / 5 ML) (2 INJECTIONS ONCE A MONTH)
     Route: 030
     Dates: start: 2021
  4. FULVESTRANT [Concomitant]
     Active Substance: FULVESTRANT
     Indication: Hepatic cancer

REACTIONS (14)
  - Blood glucose increased [Recovering/Resolving]
  - Blood pressure increased [Recovering/Resolving]
  - Weight decreased [Unknown]
  - Product dose omission issue [Unknown]
  - Asthenia [Unknown]
  - Increased appetite [Unknown]
  - Dizziness [Unknown]
  - Dry mouth [Not Recovered/Not Resolved]
  - Dry skin [Recovered/Resolved]
  - Pruritus [Recovered/Resolved]
  - Gingivitis [Not Recovered/Not Resolved]
  - Stomatitis [Unknown]
  - Impaired healing [Recovered/Resolved]
  - Fatigue [Not Recovered/Not Resolved]

NARRATIVE: CASE EVENT DATE: 20250701
